FAERS Safety Report 4289609-6 (Version None)
Quarter: 2004Q1

REPORT INFORMATION
  Report Type: 
  Country: None (occurrence: None)
  Receive Date: 20040126
  Receipt Date: 20030930
  Transmission Date: 20041129
  Serious: No
  Sender: FDA-Public Use
  Company Number: USA030948671

PATIENT
  Age: 76 Year
  Sex: Female

DRUGS (3)
  1. FORTEO [Suspect]
     Indication: BONE DENSITY DECREASED
     Dates: start: 20030825, end: 20030908
  2. MOTRIN [Concomitant]
  3. ULTRACET [Concomitant]

REACTIONS (4)
  - ASTHENIA [None]
  - FEELING ABNORMAL [None]
  - NAUSEA [None]
  - PRODUCTIVE COUGH [None]
